FAERS Safety Report 6688558-3 (Version None)
Quarter: 2010Q2

REPORT INFORMATION
  Report Type: 
  Country: None (occurrence: None)
  Receive Date: 20100420
  Receipt Date: 20100415
  Transmission Date: 20101027
  Serious: Yes (Hospitalization)
  Sender: FDA-Public Use
  Company Number: DE-MERCK-1004DEU00001

PATIENT
  Age: 57 Year
  Sex: Male
  Weight: 86 kg

DRUGS (7)
  1. JANUMET [Suspect]
     Indication: DIABETES MELLITUS
     Route: 048
     Dates: start: 20090422, end: 20090507
  2. JANUMET [Suspect]
     Route: 048
     Dates: start: 20090101, end: 20091101
  3. LEVOTHYROXINE SODIUM [Concomitant]
     Route: 048
  4. ALLOPURINOL [Concomitant]
     Route: 048
  5. OMEPRAZOLE [Concomitant]
     Route: 048
  6. BEZAFIBRATE [Concomitant]
     Route: 048
  7. ZOPICLONE [Concomitant]
     Route: 048

REACTIONS (2)
  - LIPASE INCREASED [None]
  - PANCREATITIS [None]
